FAERS Safety Report 4940999-8 (Version None)
Quarter: 2006Q1

REPORT INFORMATION
  Report Type: 
  Country: None (occurrence: None)
  Receive Date: 20060313
  Receipt Date: 20060216
  Transmission Date: 20060701
  Serious: Yes (Hospitalization, Disabling)
  Sender: FDA-Public Use
  Company Number: PHRM2006FR00803

PATIENT
  Age: 1 Day
  Sex: Male
  Weight: 0.6 kg

DRUGS (5)
  1. DETENSIEL [Suspect]
     Route: 064
  2. CHRONADALATE [Suspect]
     Route: 064
  3. CELESTENE [Concomitant]
     Route: 064
  4. CORTANCYL [Concomitant]
     Route: 064
  5. NEORAL [Suspect]
     Route: 064

REACTIONS (16)
  - BLOOD CREATININE INCREASED [None]
  - BRADYCARDIA FOETAL [None]
  - BRONCHIAL DYSPLASIA [None]
  - DRUG EXPOSURE DURING PREGNANCY [None]
  - FOETAL DISTRESS SYNDROME [None]
  - FOETAL GROWTH RETARDATION [None]
  - FOETAL MOVEMENTS DECREASED [None]
  - LEUKOPENIA NEONATAL [None]
  - PATENT DUCTUS ARTERIOSUS [None]
  - PATENT DUCTUS ARTERIOSUS REPAIR [None]
  - PREMATURE BABY [None]
  - PULMONARY HYPERTENSION [None]
  - RENAL FAILURE [None]
  - SMALL FOR DATES BABY [None]
  - THROMBOCYTOPENIA NEONATAL [None]
  - UMBILICAL CORD COMPRESSION [None]
